FAERS Safety Report 9178756 (Version 3)
Quarter: 2017Q4

REPORT INFORMATION
  Report Type: Report from Study
  Country: GB (occurrence: GB)
  Receive Date: 20130321
  Receipt Date: 20171128
  Transmission Date: 20180321
  Serious: Yes (Other)
  Sender: FDA-Public Use
  Company Number: GB-ROCHE-1204233

PATIENT

DRUGS (4)
  1. CETUXIMAB. [Suspect]
     Active Substance: CETUXIMAB
     Dosage: WEEKS 1-5 OF RADIOTHERAPY
     Route: 042
  2. IRINOTECAN [Suspect]
     Active Substance: IRINOTECAN
     Indication: RECTAL CANCER
     Dosage: WEEKS 1-4 OF RADIOTHERAPY
     Route: 042
  3. CAPECITABINE. [Suspect]
     Active Substance: CAPECITABINE
     Indication: RECTAL CANCER
     Route: 048
  4. CETUXIMAB. [Suspect]
     Active Substance: CETUXIMAB
     Indication: RECTAL CANCER
     Dosage: 1 WEEK BEFORE RADIOTHERAPY
     Route: 042

REACTIONS (36)
  - Leukopenia [Unknown]
  - Dermatitis acneiform [Unknown]
  - Nausea [Unknown]
  - Anaemia [Unknown]
  - Deep vein thrombosis [Unknown]
  - Urticaria [Unknown]
  - Herpes zoster [Unknown]
  - Dehydration [Unknown]
  - Rash [Unknown]
  - Rash papular [Unknown]
  - Anal abscess [Unknown]
  - Embolism [Unknown]
  - Vomiting [Unknown]
  - Skin toxicity [Unknown]
  - Thrombocytopenia [Unknown]
  - Pulmonary embolism [Unknown]
  - Urinary tract infection [Unknown]
  - Proctalgia [Unknown]
  - Dyschezia [Unknown]
  - Presyncope [Unknown]
  - Urinary tract disorder [Unknown]
  - Neutropenia [Unknown]
  - Febrile neutropenia [Unknown]
  - Lung infection [Unknown]
  - Pyrexia [Unknown]
  - Dysgeusia [Unknown]
  - Intestinal obstruction [Unknown]
  - Skin fissures [Unknown]
  - Thrombosis [Unknown]
  - Fatigue [Unknown]
  - Diarrhoea [Unknown]
  - Headache [Unknown]
  - Insomnia [Unknown]
  - Skin exfoliation [Unknown]
  - Rectal tenesmus [Unknown]
  - Dry skin [Unknown]
